FAERS Safety Report 9632376 (Version 1)
Quarter: 2013Q4

REPORT INFORMATION
  Report Type: Spontaneous
  Country: US (occurrence: US)
  Receive Date: 20131018
  Receipt Date: 20131018
  Transmission Date: 20140711
  Serious: No
  Sender: FDA-Public Use
  Company Number: US-BAYER-2013-126629

PATIENT
  Age: 71 Year
  Sex: Male
  Weight: 106 kg

DRUGS (2)
  1. ALEVE GELCAPS [Suspect]
     Indication: SCIATICA
     Dosage: 2 DF, BID
     Route: 048
     Dates: start: 20131014
  2. METFORMIN [Concomitant]

REACTIONS (2)
  - Drug ineffective [None]
  - Extra dose administered [None]
